FAERS Safety Report 5930601-0 (Version None)
Quarter: 2008Q4

REPORT INFORMATION
  Report Type: 
  Country: None (occurrence: None)
  Receive Date: 20081021
  Receipt Date: 20081006
  Transmission Date: 20090506
  Serious: Yes (Disabling)
  Sender: FDA-Public Use
  Company Number: 2008002652

PATIENT
  Age: 76 Year
  Sex: Female

DRUGS (5)
  1. TARCEVA [Suspect]
     Indication: LUNG NEOPLASM MALIGNANT
     Dosage: (150 MG, QD), ORAL
     Route: 048
     Dates: start: 20080422, end: 20080822
  2. ASPIRIN [Suspect]
  3. SOLDESAM (DEXAMETHASONE SODIUM PHOSPHATE) [Concomitant]
  4. OMEPRAZOLE [Concomitant]
  5. MINIAS (LORMETAZEPAM) [Concomitant]

REACTIONS (2)
  - SKIN ULCER [None]
  - SKIN ULCER HAEMORRHAGE [None]
